FAERS Safety Report 4583091-7 (Version None)
Quarter: 2005Q1

REPORT INFORMATION
  Report Type: 
  Country: None (occurrence: None)
  Receive Date: 20050125
  Receipt Date: 20041206
  Transmission Date: 20050727
  Serious: No
  Sender: FDA-Public Use
  Company Number: USA041081804

PATIENT
  Age: 62 Year
  Sex: Female

DRUGS (6)
  1. FORTEO [Suspect]
     Indication: OSTEOPOROSIS
     Dosage: 20 UG DAY
     Dates: start: 20041025
  2. EVISTA [Suspect]
     Indication: OSTEOPENIA
     Dates: start: 19990101, end: 20030101
  3. MIACALCIN [Concomitant]
  4. ACTONEL [Concomitant]
  5. FOSAMAX [Concomitant]
  6. CALCIUM GLUCONATE [Concomitant]

REACTIONS (10)
  - APPETITE DISORDER [None]
  - BONE DENSITY DECREASED [None]
  - CONTUSION [None]
  - DRUG INEFFECTIVE [None]
  - FALL [None]
  - FOOT FRACTURE [None]
  - NAUSEA [None]
  - OSTEOPOROSIS [None]
  - RADIUS FRACTURE [None]
  - ULNA FRACTURE [None]
